FAERS Safety Report 6339011-8 (Version None)
Quarter: 2009Q3

REPORT INFORMATION
  Report Type: 
  Country: None (occurrence: None)
  Receive Date: 20090903
  Receipt Date: 20090820
  Transmission Date: 20100115
  Serious: Yes (Hospitalization)
  Sender: FDA-Public Use
  Company Number: US-RB-020125-09

PATIENT
  Age: 62 Year
  Sex: Female

DRUGS (2)
  1. MUCINEX DM [Suspect]
     Route: 048
     Dates: start: 20090801
  2. WOMEN'S BAYER ASPIRIN [Suspect]
     Route: 048
     Dates: start: 20090801

REACTIONS (6)
  - ACCIDENTAL OVERDOSE [None]
  - CHEST DISCOMFORT [None]
  - DIARRHOEA [None]
  - DIZZINESS [None]
  - DYSPNOEA [None]
  - HYPOAESTHESIA [None]
